FAERS Safety Report 6366488-4 (Version None)
Quarter: 2009Q3

REPORT INFORMATION
  Report Type: 
  Country: None (occurrence: None)
  Receive Date: 20090921
  Receipt Date: 20090907
  Transmission Date: 20100115
  Serious: Yes (Other)
  Sender: FDA-Public Use
  Company Number: PL-ROCHE-655553

PATIENT
  Age: 70 Year

DRUGS (2)
  1. XELODA [Suspect]
     Route: 048
  2. OXALIPLATIN [Suspect]
     Dosage: FORM: INFUSION
     Route: 065

REACTIONS (4)
  - ABNORMAL BEHAVIOUR [None]
  - NEUTROPENIA [None]
  - PALMAR-PLANTAR ERYTHRODYSAESTHESIA SYNDROME [None]
  - THROMBOCYTOPENIA [None]
